FAERS Safety Report 19020321 (Version 2)
Quarter: 2021Q2

REPORT INFORMATION
  Report Type: Report from Study
  Country: US (occurrence: US)
  Receive Date: 20210317
  Receipt Date: 20210420
  Transmission Date: 20210717
  Serious: Yes (Hospitalization, Other)
  Sender: FDA-Public Use
  Company Number: US-SUNOVION-2021SUN000814

PATIENT
  Age: 29 Year
  Sex: Male

DRUGS (1)
  1. APTIOM [Suspect]
     Active Substance: ESLICARBAZEPINE ACETATE
     Dosage: UNK
     Route: 048

REACTIONS (7)
  - Seizure [Unknown]
  - Insomnia [Unknown]
  - Drug ineffective [Unknown]
  - Depression [Unknown]
  - Fatigue [Unknown]
  - Cognitive disorder [Unknown]
  - Somnolence [Unknown]
